FAERS Safety Report 5219294-8 (Version None)
Quarter: 2007Q1

REPORT INFORMATION
  Report Type: 
  Country: None (occurrence: None)
  Receive Date: 20070125
  Receipt Date: 20070118
  Transmission Date: 20070707
  Serious: Yes (Life-Threatening, Hospitalization)
  Sender: FDA-Public Use
  Company Number: CS-AVENTIS-200710540GDDC

PATIENT
  Sex: Male
  Weight: 121 kg

DRUGS (3)
  1. LANTUS [Suspect]
     Indication: DIABETES MELLITUS NON-INSULIN-DEPENDENT
     Route: 058
     Dates: start: 20060801
  2. OPTIPEN (INSULIN PUMP) [Suspect]
  3. SIOFOR [Concomitant]
     Indication: DIABETES MELLITUS NON-INSULIN-DEPENDENT
     Dosage: DOSE: 850 MG X 3
     Route: 048
     Dates: start: 20051028

REACTIONS (3)
  - CONFUSIONAL STATE [None]
  - ENCEPHALITIS [None]
  - MELAENA [None]
